FAERS Safety Report 9144612 (Version 3)
Quarter: 2013Q2

REPORT INFORMATION
  Report Type: Report from Study
  Country: US (occurrence: US)
  Receive Date: 20130306
  Receipt Date: 20130521
  Transmission Date: 20140414
  Serious: Yes (Hospitalization)
  Sender: FDA-Public Use
  Company Number: US-ABBOTT-13P-163-1040432-00

PATIENT
  Age: 39 Year
  Sex: Female

DRUGS (16)
  1. HUMIRA [Suspect]
     Indication: CROHN^S DISEASE
     Dates: start: 20121018, end: 201304
  2. AZATHIOPRINE [Concomitant]
     Indication: PRODUCT USED FOR UNKNOWN INDICATION
  3. ATIVAN [Concomitant]
     Indication: PRODUCT USED FOR UNKNOWN INDICATION
  4. OXYCODONE [Concomitant]
     Indication: PRODUCT USED FOR UNKNOWN INDICATION
  5. PREDNISONE [Concomitant]
     Indication: CROHN^S DISEASE
     Dosage: ALTERNATING 10 MG TO 15 MG EVERY OTHER DAY
     Route: 048
  6. TIZANIDINE [Concomitant]
     Indication: PRODUCT USED FOR UNKNOWN INDICATION
  7. PERCOCET [Concomitant]
     Indication: PRODUCT USED FOR UNKNOWN INDICATION
     Dosage: 10/325 MG USES EVERY DAY, AS NEEDED
  8. LORAZEPAM [Concomitant]
     Indication: ANXIETY
  9. NEURONTIN [Concomitant]
     Indication: NERVOUS SYSTEM DISORDER
  10. NEURONTIN [Concomitant]
     Indication: BACK PAIN
  11. NEURONTIN [Concomitant]
     Indication: NECK PAIN
  12. NEURONTIN [Concomitant]
     Indication: HEADACHE
  13. SOMA [Concomitant]
     Indication: BACK DISORDER
  14. SOMA [Concomitant]
     Indication: ARTHROPATHY
  15. BACLOFEN [Concomitant]
     Indication: MUSCLE RELAXANT THERAPY
  16. XIFAXAN [Concomitant]
     Indication: PRODUCT USED FOR UNKNOWN INDICATION
     Route: 048

REACTIONS (8)
  - Pyrexia [Unknown]
  - Sepsis [Recovering/Resolving]
  - Hot flush [Not Recovered/Not Resolved]
  - Injection site induration [Unknown]
  - Injection site warmth [Unknown]
  - Injection site urticaria [Unknown]
  - Injection site pruritus [Unknown]
  - Headache [Unknown]
